FAERS Safety Report 6277517-0 (Version None)
Quarter: 2009Q3

REPORT INFORMATION
  Report Type: 
  Country: None (occurrence: None)
  Receive Date: 20090722
  Receipt Date: 20070925
  Transmission Date: 20100115
  Serious: Yes (Hospitalization, Other)
  Sender: FDA-Public Use
  Company Number: US-ASTRAZENECA-2006UW07766

PATIENT
  Age: 14344 Day
  Sex: Female
  Weight: 48.5 kg

DRUGS (23)
  1. SEROQUEL [Suspect]
     Indication: DEPRESSION
     Dosage: 200 MG - 900 MG
     Route: 048
     Dates: start: 20020529, end: 20070531
  2. SEROQUEL [Suspect]
     Dosage: 200 MG - 1000 MG
     Route: 048
     Dates: start: 20020613
  3. ZYPREXA [Concomitant]
     Dates: start: 20010105, end: 20010108
  4. ZYPREXA [Concomitant]
     Dates: start: 20050302
  5. GLUCOPHAGE [Concomitant]
  6. ACTOS [Concomitant]
  7. BEXTRA [Concomitant]
  8. EFFEXOR [Concomitant]
  9. COGENTIN [Concomitant]
  10. RESTORIL [Concomitant]
  11. TRAZODONE [Concomitant]
  12. PRANDIN [Concomitant]
  13. LANTUS [Concomitant]
  14. AMBIEN [Concomitant]
  15. BONIVA [Concomitant]
  16. DARVOCET [Concomitant]
  17. VICODIN [Concomitant]
  18. KLONOPIN [Concomitant]
  19. CYMBALTA [Concomitant]
  20. SIMVASTATIN [Concomitant]
  21. XANAX [Concomitant]
  22. ENALAPRIL MALEATE [Concomitant]
  23. DEPAKOTE [Concomitant]

REACTIONS (6)
  - DEPRESSED LEVEL OF CONSCIOUSNESS [None]
  - DIABETES MELLITUS [None]
  - DIABETIC NEUROPATHY [None]
  - HYPOGLYCAEMIA [None]
  - LOSS OF CONSCIOUSNESS [None]
  - PANCREATITIS [None]
